FAERS Safety Report 9301262 (Version 1)
Quarter: 2013Q2

REPORT INFORMATION
  Report Type: Spontaneous
  Country: GB (occurrence: GB)
  Receive Date: 20130521
  Receipt Date: 20130521
  Transmission Date: 20140414
  Serious: Yes (Other)
  Sender: FDA-Public Use
  Company Number: GB-GLAXOSMITHKLINE-B0891510A

PATIENT
  Age: 78 Year
  Sex: Female
  Weight: 117.8 kg

DRUGS (17)
  1. SERETIDE [Suspect]
     Indication: ASTHMA
     Dosage: 4IUAX PER DAY
     Route: 055
     Dates: start: 20130425, end: 20130427
  2. WARFARIN [Concomitant]
  3. VENTOLIN [Concomitant]
  4. CALCIUM CARBONATE + SODIUM ALGINATE + SODIUM BICARBONATE [Concomitant]
  5. PARACETAMOL [Concomitant]
  6. PANTOPRAZOLE [Concomitant]
  7. NICORANDIL [Concomitant]
  8. MST CONTINUS [Concomitant]
  9. ISOSORBIDE MONONITRATE [Concomitant]
  10. GTN [Concomitant]
  11. GLICLAZIDE [Concomitant]
  12. DOXAZOSIN [Concomitant]
  13. DOMPERIDONE [Concomitant]
  14. CANDESARTAN [Concomitant]
  15. BUMETANIDE [Concomitant]
  16. ADIZEM-SR [Concomitant]
  17. ADCAL-D3 [Concomitant]

REACTIONS (4)
  - Swelling face [Recovering/Resolving]
  - Swollen tongue [Recovering/Resolving]
  - Infective glossitis [Unknown]
  - Tongue disorder [Unknown]
